FAERS Safety Report 10733022 (Version 1)
Quarter: 2015Q1

REPORT INFORMATION
  Report Type: Spontaneous
  Country: US (occurrence: US)
  Receive Date: 20150123
  Receipt Date: 20150123
  Transmission Date: 20150721
  Serious: No
  Sender: FDA-Public Use
  Company Number: US-TARO-2014TAR00326

PATIENT
  Sex: Female
  Weight: 106.58 kg

DRUGS (4)
  1. DESOXIMETASONE CREAM USP 0.05% [Suspect]
     Active Substance: DESOXIMETASONE
     Indication: DERMATITIS
     Dosage: UNK
     Route: 061
     Dates: start: 201402, end: 201402
  2. IRON [Concomitant]
     Active Substance: IRON
  3. ZINC [Concomitant]
     Active Substance: ZINC\ZINC CHLORIDE
  4. BIOTIN [Concomitant]
     Active Substance: BIOTIN

REACTIONS (6)
  - Rash [Recovered/Resolved]
  - Skin hypopigmentation [Not Recovered/Not Resolved]
  - Hyperaesthesia [Not Recovered/Not Resolved]
  - Pain of skin [Not Recovered/Not Resolved]
  - Pruritus [Recovered/Resolved]
  - Drug ineffective for unapproved indication [Not Recovered/Not Resolved]

NARRATIVE: CASE EVENT DATE: 2014
